FAERS Safety Report 8398164-0 (Version None)
Quarter: 2012Q2

REPORT INFORMATION
  Report Type: 
  Country: None (occurrence: None)
  Receive Date: 20120531
  Receipt Date: 20120525
  Transmission Date: 20120825
  Serious: Yes (Death)
  Sender: FDA-Public Use
  Company Number: GR-PFIZER INC-2012104632

PATIENT
  Age: 50 Year
  Sex: Male

DRUGS (8)
  1. IFOSFAMIDE [Suspect]
     Indication: HODGKIN'S DISEASE
  2. DOXORUBICIN HCL [Suspect]
     Indication: HODGKIN'S DISEASE
  3. ETOPOSIDE [Suspect]
     Indication: HODGKIN'S DISEASE
  4. BLEOMYCIN SULFATE [Suspect]
     Indication: HODGKIN'S DISEASE
  5. VINBLASTINE SULFATE [Suspect]
     Indication: HODGKIN'S DISEASE
  6. MESNA [Suspect]
     Indication: HODGKIN'S DISEASE
  7. MITOXANTRONE HYDROCHLORIDE [Suspect]
  8. DACARBAZINE [Suspect]
     Indication: HODGKIN'S DISEASE

REACTIONS (2)
  - MULTI-ORGAN FAILURE [None]
  - TOXICITY TO VARIOUS AGENTS [None]
